FAERS Safety Report 13903326 (Version 1)
Quarter: 2017Q3

REPORT INFORMATION
  Report Type: Spontaneous
  Country: US (occurrence: US)
  Receive Date: 20170824
  Receipt Date: 20170824
  Transmission Date: 20171127
  Serious: No
  Sender: FDA-Public Use
  Company Number: US-PFIZER INC-2017361312

PATIENT
  Sex: Female

DRUGS (3)
  1. IBRANCE [Suspect]
     Active Substance: PALBOCICLIB
     Dosage: 100 MG, CYCLIC, (TAKING 1 A DAY FOR 21 DAYS AND NONE FOR 7 DAYS AS A CYCLE, ORALLY IN THE MORNING)
     Route: 048
  2. IBRANCE [Suspect]
     Active Substance: PALBOCICLIB
     Dosage: 75 MG, CYCLIC, (TAKING 1 A DAY FOR 21 DAYS AND NONE FOR 7 DAYS AS A CYCLE, ORALLY IN THE MORNING)
     Route: 048
     Dates: end: 20150820
  3. IBRANCE [Suspect]
     Active Substance: PALBOCICLIB
     Dosage: 125 MG, CYCLIC, (TAKING 1 A DAY FOR 21 DAYS AND NONE FOR 7 DAYS AS A CYCLE, ORALLY IN THE MORNING)
     Route: 048
     Dates: start: 201503

REACTIONS (6)
  - Fatigue [Unknown]
  - Neutrophil count decreased [Unknown]
  - Hypersomnia [Unknown]
  - Muscle fatigue [Unknown]
  - Mouth ulceration [Unknown]
  - White blood cell count decreased [Not Recovered/Not Resolved]
